FAERS Safety Report 9420116 (Version 1)
Quarter: 2013Q3

REPORT INFORMATION
  Report Type: Spontaneous
  Country: US (occurrence: None)
  Receive Date: 20130724
  Receipt Date: 20130724
  Transmission Date: 20140515
  Serious: Yes (Hospitalization)
  Sender: FDA-Public Use
  Company Number: None

PATIENT
  Age: 69 Year
  Sex: Female
  Weight: 92.8 kg

DRUGS (6)
  1. RIVAROXABAN [Suspect]
     Indication: ATRIAL FIBRILLATION
     Dates: start: 20130504
  2. ASPIRIN [Suspect]
  3. PREDNISONE [Concomitant]
  4. DRONEDARONE HCL [Concomitant]
  5. DILTIAZEM HCL [Concomitant]
  6. INSULIN HUMALOG [Concomitant]

REACTIONS (7)
  - Nausea [None]
  - Vomiting [None]
  - Diarrhoea [None]
  - Abdominal pain [None]
  - Haematochezia [None]
  - Diarrhoea [None]
  - Haemorrhoids [None]
